FAERS Safety Report 10242988 (Version 2)
Quarter: 2014Q3

REPORT INFORMATION
  Report Type: Spontaneous
  Country: BR (occurrence: BR)
  Receive Date: 20140618
  Receipt Date: 20140827
  Transmission Date: 20150326
  Serious: Yes (Death, Other)
  Sender: FDA-Public Use
  Company Number: BR-ABBVIE-14K-020-1248849-00

PATIENT
  Age: 1 Day
  Weight: .9 kg

DRUGS (8)
  1. VITAMIN K [Concomitant]
     Active Substance: PHYTONADIONE
     Indication: PROPHYLAXIS
  2. FUROSEMIDE. [Concomitant]
     Active Substance: FUROSEMIDE
     Indication: PRODUCT USED FOR UNKNOWN INDICATION
     Dates: start: 20140607
  3. FENTANYL. [Concomitant]
     Active Substance: FENTANYL
     Indication: SEDATION
     Dosage: 10 MCG/KG/MIN CONTINUOUS INFUSION
     Dates: start: 20140607
  4. SURVANTA [Suspect]
     Active Substance: BERACTANT
     Indication: PRODUCT USED FOR UNKNOWN INDICATION
     Dates: start: 20140605, end: 20140605
  5. VITAMIN K [Concomitant]
     Active Substance: PHYTONADIONE
     Indication: HAEMORRHAGIC DISEASE OF NEWBORN
     Dates: start: 20140605, end: 20140605
  6. DOPAMINE [Concomitant]
     Active Substance: DOPAMINE\DOPAMINE HYDROCHLORIDE
     Indication: SHOCK
     Dosage: 20 MCG/KG/MIN
     Dates: start: 20140607
  7. FRESH FROZEN PLASMA [Concomitant]
     Active Substance: HUMAN PLASMA
     Indication: PRODUCT USED FOR UNKNOWN INDICATION
     Dates: start: 20140607
  8. DOBUTAMINE [Concomitant]
     Active Substance: DOBUTAMINE\DOBUTAMINE HYDROCHLORIDE
     Indication: SHOCK
     Dosage: 20 MCG/KG/MIN CONTINUOUS INFUSION
     Dates: start: 20140607

REACTIONS (2)
  - Convulsion [Fatal]
  - Pulmonary haemorrhage [Fatal]

NARRATIVE: CASE EVENT DATE: 20140607
